FAERS Safety Report 5466254-8 (Version None)
Quarter: 2007Q3

REPORT INFORMATION
  Report Type: 
  Country: None (occurrence: None)
  Receive Date: 20070924
  Receipt Date: 20070917
  Transmission Date: 20080115
  Serious: Yes (Other)
  Sender: FDA-Public Use
  Company Number: US-PFIZER INC-2007077631

PATIENT
  Sex: Male

DRUGS (7)
  1. VIAGRA [Suspect]
     Indication: ERECTILE DYSFUNCTION
  2. VITAMIN B-12 [Concomitant]
  3. LEVOXYL [Concomitant]
     Indication: THYROID DISORDER
  4. PRENATAL VITAMINS [Concomitant]
  5. LOPERAMIDE HCL [Concomitant]
  6. LOMOTIL [Concomitant]
  7. ZOLOFT [Concomitant]

REACTIONS (3)
  - DRUG EFFECT DECREASED [None]
  - GASTRIC CANCER [None]
  - WEIGHT DECREASED [None]
